FAERS Safety Report 10201115 (Version 1)
Quarter: 2014Q2

REPORT INFORMATION
  Report Type: Spontaneous
  Country: US (occurrence: US)
  Receive Date: 20140528
  Receipt Date: 20140528
  Transmission Date: 20141212
  Serious: No
  Sender: FDA-Public Use
  Company Number: US-009507513-1405USA010182

PATIENT
  Age: 27 Year
  Sex: Female
  Weight: 175.51 kg

DRUGS (1)
  1. IMPLANON [Suspect]
     Dosage: UNK
     Route: 059
     Dates: start: 20110404, end: 20140519

REACTIONS (7)
  - Device difficult to use [Recovered/Resolved]
  - Device breakage [Unknown]
  - Obesity [Unknown]
  - Device physical property issue [Unknown]
  - Weight increased [Unknown]
  - Medical device complication [Unknown]
  - Incorrect drug administration duration [Unknown]
